FAERS Safety Report 8368170-0 (Version None)
Quarter: 2012Q2

REPORT INFORMATION
  Report Type: 
  Country: None (occurrence: None)
  Receive Date: 20120517
  Receipt Date: 20120514
  Transmission Date: 20120825
  Serious: Yes (Other)
  Sender: FDA-Public Use
  Company Number: CHPA2012US010172

PATIENT
  Sex: Female

DRUGS (2)
  1. EXCEDRIN TENSION HEADACHE CAPLETS [Concomitant]
     Indication: HEADACHE
     Dosage: 1 DF, PRN
     Route: 048
  2. EXCEDRIN EXTRA STRENGTH TABLETS [Suspect]
     Indication: HEADACHE
     Dosage: 1 DF, QD
     Route: 048

REACTIONS (7)
  - UNDERDOSE [None]
  - DEPRESSION [None]
  - DYSPEPSIA [None]
  - INCORRECT DRUG ADMINISTRATION DURATION [None]
  - ANXIETY [None]
  - PANIC ATTACK [None]
  - GASTROOESOPHAGEAL REFLUX DISEASE [None]
